FAERS Safety Report 20474706 (Version 1)
Quarter: 2022Q1

REPORT INFORMATION
  Report Type: Spontaneous
  Country: US (occurrence: None)
  Receive Date: 20220214
  Receipt Date: 20220214
  Transmission Date: 20220423
  Serious: No
  Sender: FDA-Public Use
  Company Number: None

PATIENT
  Age: 83 Year
  Sex: Female
  Weight: 86.4 kg

DRUGS (1)
  1. OCTAGAM IMMUNE GLOBULIN (HUMAN) [Suspect]
     Active Substance: HUMAN IMMUNOGLOBULIN G
     Dosage: OTHER FREQUENCY : MONTHLY;?
     Route: 041
     Dates: start: 20220203, end: 20220203

REACTIONS (7)
  - Pruritus [None]
  - Infusion related reaction [None]
  - Rash [None]
  - Lip swelling [None]
  - Swollen tongue [None]
  - Heart rate increased [None]
  - Dyspnoea [None]

NARRATIVE: CASE EVENT DATE: 20220203
